FAERS Safety Report 25956969 (Version 1)
Quarter: 2025Q4

REPORT INFORMATION
  Report Type: Spontaneous
  Country: US (occurrence: US)
  Receive Date: 20251024
  Receipt Date: 20251024
  Transmission Date: 20260118
  Serious: Yes (Hospitalization, Disabling)
  Sender: B. BRAUN MEDICAL INC.
  Company Number: None

PATIENT
  Age: 75 Year
  Sex: Male

DRUGS (2)
  1. LIDOCAINE [Suspect]
     Active Substance: LIDOCAINE
     Indication: Neovascular age-related macular degeneration
     Dosage: NON-PRESERVED LIDOCAINE  2% MEANT FOR SUBCONJUNCTIVAL ANESTHESIA INTRAVITREALLY OD  THROUGH THE PARS PLANA.
  2. AFLIBERCEPT [Concomitant]
     Active Substance: AFLIBERCEPT
     Indication: Neovascular age-related macular degeneration
     Dosage: EVERY 5 WEEK;

REACTIONS (5)
  - Blindness transient [Recovered/Resolved]
  - Intraocular pressure increased [Recovered/Resolved]
  - Incorrect route of product administration [Recovered/Resolved]
  - Accidental exposure to product [Recovered/Resolved]
  - Product preparation error [Recovered/Resolved]
